FAERS Safety Report 8271208-2 (Version None)
Quarter: 2012Q2

REPORT INFORMATION
  Report Type: 
  Country: None (occurrence: None)
  Receive Date: 20120406
  Receipt Date: 20120328
  Transmission Date: 20120825
  Serious: Yes (Hospitalization, Other)
  Sender: FDA-Public Use
  Company Number: VAL_00727_2012

PATIENT
  Age: 51 Year
  Sex: Male

DRUGS (3)
  1. COLD MEDICATION [Concomitant]
  2. CARBAMAZEPINE [Suspect]
     Indication: TRIGEMINAL NEURALGIA
     Dosage: (400 MG ORAL), (200 MG ORAL)
     Route: 048
  3. CARBAMAZEPINE [Suspect]
     Indication: TRIGEMINAL NEURALGIA
     Dosage: (400 MG ORAL), (200 MG ORAL)
     Route: 048

REACTIONS (13)
  - OROPHARYNGEAL PAIN [None]
  - ARTHRALGIA [None]
  - FACE OEDEMA [None]
  - EOSINOPHIL COUNT INCREASED [None]
  - TRIGEMINAL NEURALGIA [None]
  - ORAL MUCOSAL ERYTHEMA [None]
  - FLUSHING [None]
  - C-REACTIVE PROTEIN INCREASED [None]
  - DRUG RASH WITH EOSINOPHILIA AND SYSTEMIC SYMPTOMS [None]
  - ERYTHEMA [None]
  - HEPATIC FUNCTION ABNORMAL [None]
  - LYMPHADENOPATHY [None]
  - WHITE BLOOD CELL COUNT INCREASED [None]
